FAERS Safety Report 11290134 (Version 1)
Quarter: 2015Q3

REPORT INFORMATION
  Report Type: Spontaneous
  Country: DE (occurrence: DE)
  Receive Date: 20150721
  Receipt Date: 20150721
  Transmission Date: 20151125
  Serious: Yes (Hospitalization, Other)
  Sender: FDA-Public Use
  Company Number: DE-GILEAD-2015-0164057

PATIENT
  Sex: Female

DRUGS (4)
  1. ZYDELIG [Suspect]
     Active Substance: IDELALISIB
     Dosage: 150 MG, QD
     Route: 065
     Dates: start: 201507
  2. PRIVIGEN [Concomitant]
     Active Substance: HUMAN IMMUNOGLOBULIN G
  3. ZYDELIG [Suspect]
     Active Substance: IDELALISIB
     Dosage: 150 MG, BID
     Route: 065
     Dates: start: 201503, end: 201507
  4. ZYDELIG [Suspect]
     Active Substance: IDELALISIB
     Indication: CHRONIC LYMPHOCYTIC LEUKAEMIA
     Dosage: UNK
     Route: 065
     Dates: start: 201410, end: 201412

REACTIONS (6)
  - Pyrexia [Unknown]
  - Pneumonia [Unknown]
  - Viral infection [Unknown]
  - Off label use [Unknown]
  - Rash pruritic [Recovering/Resolving]
  - Pyrexia [Unknown]

NARRATIVE: CASE EVENT DATE: 201412
